FAERS Safety Report 4752721-9 (Version None)
Quarter: 2005Q3

REPORT INFORMATION
  Report Type: 
  Country: None (occurrence: None)
  Receive Date: 20050823
  Receipt Date: 20050810
  Transmission Date: 20060218
  Serious: Yes (Hospitalization)
  Sender: FDA-Public Use
  Company Number: DE-2005-016686

PATIENT
  Age: 39 Year
  Sex: Female

DRUGS (6)
  1. BETASERON [Suspect]
     Dosage: UNK, SUBCUTANEOUS
     Route: 058
     Dates: start: 20050801
  2. IBUTAD (IBUPROFEN SODIUM) [Concomitant]
  3. ANTELEPSIN (CLONAZEPAM) [Concomitant]
  4. RIVOTRIL (CLONAZEPAM) [Concomitant]
  5. IRON PREPARATIONS [Concomitant]
  6. CERAZETTE [Concomitant]

REACTIONS (5)
  - ABORTION [None]
  - BENIGN HYDATIDIFORM MOLE [None]
  - DRUG EXPOSURE DURING PREGNANCY [None]
  - PREGNANCY [None]
  - VAGINAL HAEMORRHAGE [None]
